FAERS Safety Report 14579476 (Version 5)
Quarter: 2019Q4

REPORT INFORMATION
  Report Type: Spontaneous
  Country: US (occurrence: US)
  Receive Date: 20180227
  Receipt Date: 20191016
  Transmission Date: 20200122
  Serious: No
  Sender: FDA-Public Use
  Company Number: US-ACTELION-A-US2018-168286

PATIENT
  Age: 50 Year
  Sex: Female

DRUGS (5)
  1. OPSUMIT [Suspect]
     Active Substance: MACITENTAN
     Indication: PULMONARY ARTERIAL HYPERTENSION
     Dosage: UNK
     Route: 048
  2. OPSUMIT [Suspect]
     Active Substance: MACITENTAN
     Dosage: 10 MG, QD
     Route: 048
     Dates: start: 20171207
  3. ORENITRAM [Concomitant]
     Active Substance: TREPROSTINIL
     Dosage: 2.5 MG, TID
     Dates: start: 20171207
  4. ADEMPAS [Suspect]
     Active Substance: RIOCIGUAT
     Indication: PRODUCT USED FOR UNKNOWN INDICATION
     Dosage: 1.5 QAM, 2 MG BID
     Route: 065
  5. TADALAFIL. [Concomitant]
     Active Substance: TADALAFIL

REACTIONS (12)
  - Product dose omission [Unknown]
  - Flushing [Not Recovered/Not Resolved]
  - Diarrhoea [Not Recovered/Not Resolved]
  - Dizziness [Unknown]
  - Vomiting [Unknown]
  - Gastroenteritis viral [Unknown]
  - Photopsia [Unknown]
  - Malaise [Unknown]
  - Oedema [Unknown]
  - Fatigue [Unknown]
  - Asthenia [Unknown]
  - Tinnitus [Unknown]

NARRATIVE: CASE EVENT DATE: 20190323
